FAERS Safety Report 13905275 (Version 1)
Quarter: 2017Q3

REPORT INFORMATION
  Report Type: Spontaneous
  Country: US (occurrence: None)
  Receive Date: 20170824
  Receipt Date: 20170824
  Transmission Date: 20171127
  Serious: Yes (Hospitalization)
  Sender: FDA-Public Use
  Company Number: None

PATIENT
  Age: 71 Year
  Sex: Female

DRUGS (13)
  1. ENBREL [Suspect]
     Active Substance: ETANERCEPT
     Indication: RHEUMATOID ARTHRITIS
     Route: 058
     Dates: start: 20170201
  2. FENOFIBRATE. [Concomitant]
     Active Substance: FENOFIBRATE
  3. SIMVASTATIN. [Concomitant]
     Active Substance: SIMVASTATIN
  4. ESTRADIOL. [Concomitant]
     Active Substance: ESTRADIOL
  5. LOSARTAN. [Concomitant]
     Active Substance: LOSARTAN
  6. METHOTREXATE. [Concomitant]
     Active Substance: METHOTREXATE
  7. DEXILANT [Concomitant]
     Active Substance: DEXLANSOPRAZOLE
  8. ANUCORT [Concomitant]
  9. FOLIC ACID. [Concomitant]
     Active Substance: FOLIC ACID
  10. FENOFIBRATE. [Concomitant]
     Active Substance: FENOFIBRATE
  11. SIMVASTATIN. [Concomitant]
     Active Substance: SIMVASTATIN
  12. BUPRO [Concomitant]
  13. ALPRAZOLAM. [Concomitant]
     Active Substance: ALPRAZOLAM

REACTIONS (3)
  - Therapy cessation [None]
  - Intestinal obstruction [None]
  - Arthralgia [None]

NARRATIVE: CASE EVENT DATE: 2017
